FAERS Safety Report 5831820-4 (Version None)
Quarter: 2008Q3

REPORT INFORMATION
  Report Type: 
  Country: None (occurrence: None)
  Receive Date: 20080731
  Receipt Date: 20080716
  Transmission Date: 20090109
  Serious: Yes (Hospitalization)
  Sender: FDA-Public Use
  Company Number: 2008AL008567

PATIENT
  Age: 75 Year
  Sex: Female
  Weight: 47.6277 kg

DRUGS (1)
  1. DIGOXIN [Suspect]
     Indication: EXTRASYSTOLES
     Dosage: 1.50MG TID PO
     Route: 048
     Dates: start: 20080101, end: 20080310

REACTIONS (9)
  - ASTHENIA [None]
  - DIZZINESS [None]
  - HEADACHE [None]
  - HYPOAESTHESIA [None]
  - ILL-DEFINED DISORDER [None]
  - MUSCLE TWITCHING [None]
  - NAUSEA [None]
  - PYREXIA [None]
  - VISION BLURRED [None]
